FAERS Safety Report 17576851 (Version 1)
Quarter: 2020Q1

REPORT INFORMATION
  Report Type: Spontaneous
  Country: US (occurrence: US)
  Receive Date: 20200319
  Receipt Date: 20200319
  Transmission Date: 20200409
  Serious: Yes (Hospitalization, Other)
  Sender: FDA-Public Use
  Company Number: None

PATIENT
  Sex: Male

DRUGS (1)
  1. ZARXIO [Suspect]
     Active Substance: FILGRASTIM-SNDZ
     Indication: CYCLIC NEUTROPENIA
     Dosage: ?          OTHER STRENGTH:480MCG/0.8ML;?
     Route: 058
     Dates: start: 20180619

REACTIONS (2)
  - Gastrointestinal haemorrhage [None]
  - Cardiac murmur [None]
